FAERS Safety Report 7390203-9 (Version None)
Quarter: 2011Q2

REPORT INFORMATION
  Report Type: 
  Country: None (occurrence: None)
  Receive Date: 20110401
  Receipt Date: 20110324
  Transmission Date: 20111010
  Serious: Yes (Other)
  Sender: FDA-Public Use
  Company Number: CA-ROCHE-749094

PATIENT
  Sex: Female
  Weight: 140 kg

DRUGS (6)
  1. TEMODAL [Concomitant]
  2. DILANTIN [Concomitant]
  3. BEVACIZUMAB [Suspect]
     Route: 042
  4. STEMETIL [Concomitant]
  5. ZOFRAN [Concomitant]
  6. BEVACIZUMAB [Suspect]
     Indication: GLIOBLASTOMA
     Dosage: FORM: INFUSION
     Route: 042
     Dates: start: 20100129

REACTIONS (4)
  - CONSTIPATION [None]
  - ABDOMINAL DISCOMFORT [None]
  - CONVULSION [None]
  - PROTEIN URINE PRESENT [None]
